FAERS Safety Report 9010831 (Version 2)
Quarter: 2013Q1

REPORT INFORMATION
  Report Type: Spontaneous
  Country: US (occurrence: US)
  Receive Date: 20130109
  Receipt Date: 20130311
  Transmission Date: 20140127
  Serious: Yes (Death, Hospitalization)
  Sender: FDA-Public Use
  Company Number: US-SHIRE-ALL1-2013-00092

PATIENT
  Sex: Female
  Weight: 54.4 kg

DRUGS (6)
  1. VPRIV [Suspect]
     Indication: GAUCHER^S DISEASE
     Dosage: UNK, UNKNOWN
     Route: 041
     Dates: start: 20110607
  2. WARFARIN [Concomitant]
     Indication: PRODUCT USED FOR UNKNOWN INDICATION
     Dosage: 2 MG, UNKNOWN (TAKEN ON MON + THU)
     Route: 048
     Dates: start: 20091230
  3. WARFARIN [Concomitant]
     Dosage: 4 MG, UNKNOWN (TAKEN ON TUE, WED, FRI, SAT + SUN)
     Route: 048
     Dates: start: 20091230
  4. ZALEPLON [Concomitant]
     Indication: PRODUCT USED FOR UNKNOWN INDICATION
     Dosage: 5 MG, OTHER (TAKEN EVERY OTHER DAY)
     Route: 048
     Dates: start: 20110607
  5. ZOLPIDEM [Concomitant]
     Indication: PRODUCT USED FOR UNKNOWN INDICATION
     Dosage: 5 MG, OTHER (TAKEN EVERY OTHER DAY)
     Route: 048
     Dates: start: 20091230
  6. NIACIN [Concomitant]
     Indication: PRODUCT USED FOR UNKNOWN INDICATION
     Dosage: 1500 MG, 1X/DAY:QD (1000 MG MORNING + 500 MG NIGHT)
     Route: 065
     Dates: start: 20091230

REACTIONS (1)
  - Staphylococcal infection [Fatal]
